FAERS Safety Report 4975087-8 (Version None)
Quarter: 2006Q2

REPORT INFORMATION
  Report Type: 
  Country: None (occurrence: None)
  Receive Date: 20060411
  Receipt Date: 20060327
  Transmission Date: 20061013
  Serious: Yes (Death, Life-Threatening, Hospitalization)
  Sender: FDA-Public Use
  Company Number: 2004-00394

PATIENT
  Age: 60 Year
  Sex: Female
  Weight: 58.6 kg

DRUGS (3)
  1. VELCADE [Suspect]
     Indication: MULTIPLE MYELOMA
     Dosage: 1.30 MG/M2, 2/WEEK, IV BOLUS
     Route: 040
     Dates: start: 20040720, end: 20040817
  2. ZOLEDRONIC ACID [Concomitant]
  3. ZOPICLONE [Concomitant]

REACTIONS (16)
  - ACTIVATED PARTIAL THROMBOPLASTIN TIME PROLONGED [None]
  - BLOOD ALBUMIN INCREASED [None]
  - BLOOD CALCIUM DECREASED [None]
  - BLOOD FIBRINOGEN INCREASED [None]
  - BLOOD VISCOSITY INCREASED [None]
  - BUDD-CHIARI SYNDROME [None]
  - DEHYDRATION [None]
  - HAEMOGLOBIN DECREASED [None]
  - HEPATIC VEIN THROMBOSIS [None]
  - HYPERCALCAEMIA [None]
  - ILEUS PARALYTIC [None]
  - MONOCLONAL IMMUNOGLOBULIN PRESENT [None]
  - PLATELET COUNT DECREASED [None]
  - PNEUMONIA [None]
  - PROTHROMBIN TIME PROLONGED [None]
  - WHITE BLOOD CELL COUNT DECREASED [None]
